FAERS Safety Report 14390904 (Version 4)
Quarter: 2018Q3

REPORT INFORMATION
  Report Type: Spontaneous
  Country: JP (occurrence: JP)
  Receive Date: 20180116
  Receipt Date: 20180906
  Transmission Date: 20181010
  Serious: Yes (Hospitalization, Other)
  Sender: FDA-Public Use
  Company Number: JP-009507513-1801JPN000594J

PATIENT
  Age: 79 Year
  Sex: Male

DRUGS (1)
  1. KEYTRUDA [Suspect]
     Active Substance: PEMBROLIZUMAB
     Indication: LUNG ADENOCARCINOMA
     Dosage: 200 MG, UNK
     Route: 041
     Dates: start: 2017, end: 2017

REACTIONS (2)
  - Hypophysitis [Recovered/Resolved]
  - Small intestinal perforation [Unknown]

NARRATIVE: CASE EVENT DATE: 20180104
